FAERS Safety Report 20611186 (Version 1)
Quarter: 2022Q1

REPORT INFORMATION
  Report Type: Spontaneous
  Country: US (occurrence: None)
  Receive Date: 20220317
  Receipt Date: 20220317
  Transmission Date: 20220423
  Serious: No
  Sender: FDA-Public Use
  Company Number: None

PATIENT
  Age: 85 Year
  Sex: Male
  Weight: 238.8 kg

DRUGS (9)
  1. ABIRATERONE [Suspect]
     Active Substance: ABIRATERONE
     Indication: Prostate cancer
     Dosage: FREQUENCY : DAILY;?
     Route: 048
     Dates: start: 20220127
  2. Asorbic Acid Ora [Concomitant]
  3. Claritin Ora [Concomitant]
  4. Cozaar Oral [Concomitant]
  5. VITAMIN B12 [Concomitant]
     Active Substance: CYANOCOBALAMIN
  6. PREDNISONE [Concomitant]
     Active Substance: PREDNISONE
  7. SODIM CHLORIDE [Concomitant]
  8. VITAMIN D3 [Suspect]
     Active Substance: CHOLECALCIFEROL
  9. ZYRTEC [Suspect]
     Active Substance: CETIRIZINE HYDROCHLORIDE

REACTIONS (1)
  - Hepatic enzyme increased [None]
